FAERS Safety Report 17056425 (Version 1)
Quarter: 2019Q4

REPORT INFORMATION
  Report Type: Report from Study
  Country: None (occurrence: DE)
  Receive Date: 20191121
  Receipt Date: 20191121
  Transmission Date: 20200122
  Serious: Yes (Hospitalization)
  Sender: FDA-Public Use
  Company Number: DE-ABBVIE-19K-062-3002910-00

PATIENT
  Age: 81 Year
  Sex: Male

DRUGS (1)
  1. DUODOPA [Suspect]
     Active Substance: CARBIDOPA\LEVODOPA
     Indication: PARKINSON^S DISEASE
     Dosage: MD: 6.5ML, CRD: 3.2ML/H, ED: 1.7ML
     Route: 050
     Dates: start: 20140520

REACTIONS (1)
  - Foreign body aspiration [Not Recovered/Not Resolved]

NARRATIVE: CASE EVENT DATE: 20191112
